FAERS Safety Report 6432496-8 (Version None)
Quarter: 2009Q4

REPORT INFORMATION
  Report Type: 
  Country: None (occurrence: None)
  Receive Date: 20091109
  Receipt Date: 20091103
  Transmission Date: 20100525
  Serious: Yes (Hospitalization, Other)
  Sender: FDA-Public Use
  Company Number: BE-BAYER-200935365GPV

PATIENT

DRUGS (1)
  1. NEXAVAR [Suspect]
     Indication: DRUG USE FOR UNKNOWN INDICATION
     Dates: start: 20090630, end: 20091020

REACTIONS (7)
  - DIARRHOEA [None]
  - DIVERTICULUM [None]
  - GASTROINTESTINAL INFLAMMATION [None]
  - HAEMORRHAGE [None]
  - PALMAR-PLANTAR ERYTHRODYSAESTHESIA SYNDROME [None]
  - PERITONITIS [None]
  - PROCEDURAL COMPLICATION [None]
